FAERS Safety Report 4667126-9 (Version None)
Quarter: 2005Q2

REPORT INFORMATION
  Report Type: 
  Country: None (occurrence: None)
  Receive Date: 20050520
  Receipt Date: 20040329
  Transmission Date: 20051028
  Serious: Yes (Other)
  Sender: FDA-Public Use
  Company Number: PHEH2004US03590

PATIENT
  Age: 70 Year
  Sex: Male

DRUGS (6)
  1. DECADRON [Concomitant]
     Indication: MULTIPLE MYELOMA
     Dates: start: 20020101, end: 20040301
  2. VINCRISTINE [Concomitant]
     Indication: MULTIPLE MYELOMA
     Dates: start: 20010101, end: 20040301
  3. ADRIAMYCIN PFS [Concomitant]
     Indication: MULTIPLE MYELOMA
     Dates: start: 20010101, end: 20040301
  4. DAUNORUBICIN [Concomitant]
     Indication: MULTIPLE MYELOMA
     Dates: start: 20010101, end: 20040301
  5. THALIDOMIDE [Concomitant]
     Indication: MULTIPLE MYELOMA
     Dates: start: 20010101, end: 20040301
  6. ZOMETA [Suspect]
     Indication: MULTIPLE MYELOMA
     Dosage: 4 MG EVERY MONTH
     Route: 042
     Dates: start: 20020901, end: 20040301

REACTIONS (7)
  - ABSCESS DRAINAGE [None]
  - ASEPTIC NECROSIS BONE [None]
  - BONE DISORDER [None]
  - OSTEONECROSIS [None]
  - PAIN [None]
  - SEQUESTRECTOMY [None]
  - SWELLING [None]
